FAERS Safety Report 20852900 (Version 1)
Quarter: 2022Q2

REPORT INFORMATION
  Report Type: Spontaneous
  Country: US (occurrence: None)
  Receive Date: 20220520
  Receipt Date: 20220520
  Transmission Date: 20220720
  Serious: Yes (Hospitalization, Other)
  Sender: FDA-Public Use
  Company Number: US-MLMSERVICE-20220506-3538894-1

PATIENT
  Age: 50 Year
  Sex: Male

DRUGS (4)
  1. LORAZEPAM [Suspect]
     Active Substance: LORAZEPAM
     Indication: Alcohol withdrawal syndrome
     Route: 042
  2. CHLORDIAZEPOXIDE [Concomitant]
     Active Substance: CHLORDIAZEPOXIDE
     Indication: Alcohol withdrawal syndrome
     Route: 048
  3. DILTIAZEM [Concomitant]
     Active Substance: DILTIAZEM
     Indication: Atrial fibrillation
     Dosage: CONTINUOUS INFUSION
     Route: 041
  4. DILTIAZEM [Concomitant]
     Active Substance: DILTIAZEM
     Dosage: CONTINUOUS INFUSION
     Route: 041

REACTIONS (3)
  - Behaviour disorder [Recovered/Resolved]
  - Paradoxical drug reaction [Recovered/Resolved]
  - Agitation [Recovered/Resolved]
